FAERS Safety Report 6825896-5 (Version None)
Quarter: 2010Q3

REPORT INFORMATION
  Report Type: 
  Country: None (occurrence: None)
  Receive Date: 20100709
  Receipt Date: 20100630
  Transmission Date: 20110219
  Serious: Yes (Hospitalization, Other)
  Sender: FDA-Public Use
  Company Number: JP-JNJFOC-20100701630

PATIENT
  Age: 49 Year
  Sex: Female

DRUGS (4)
  1. REMICADE [Suspect]
     Indication: ARTHRITIS
     Dosage: RECEIVED A TOTAL OF 1 INFUSION
     Route: 042
  2. REMICADE [Suspect]
     Indication: PUSTULAR PSORIASIS
     Dosage: RECEIVED A TOTAL OF 1 INFUSION
     Route: 042
  3. SALAZOSULFAPYRIDINE [Suspect]
     Indication: PUSTULAR PSORIASIS
  4. METHOTREXATE [Suspect]
     Indication: PUSTULAR PSORIASIS

REACTIONS (1)
  - BURSA INJURY [None]
